FAERS Safety Report 22373247 (Version 1)
Quarter: 2023Q2

REPORT INFORMATION
  Report Type: Spontaneous
  Country: US (occurrence: US)
  Receive Date: 20230526
  Receipt Date: 20230526
  Transmission Date: 20230722
  Serious: No
  Sender: FDA-Public Use
  Company Number: US-PERRIGO-22US006456

PATIENT
  Sex: Female

DRUGS (2)
  1. MINOXIDIL [Suspect]
     Active Substance: MINOXIDIL
     Indication: Alopecia
     Dosage: UNK, BID
     Route: 061
     Dates: start: 202204, end: 202204
  2. MINOXIDIL [Suspect]
     Active Substance: MINOXIDIL
     Dosage: UNK, SINGLE
     Route: 061
     Dates: start: 20220428, end: 20220428

REACTIONS (4)
  - Alopecia [Unknown]
  - Inappropriate schedule of product administration [Recovered/Resolved]
  - Incorrect dose administered [Recovered/Resolved]
  - Product administered at inappropriate site [Recovered/Resolved]

NARRATIVE: CASE EVENT DATE: 20220401
